FAERS Safety Report 21962244 (Version 2)
Quarter: 2023Q1

REPORT INFORMATION
  Report Type: Report from Study
  Country: US (occurrence: US)
  Receive Date: 20230207
  Receipt Date: 20230207
  Transmission Date: 20230418
  Serious: No
  Sender: FDA-Public Use
  Company Number: US-HRARD-2020000961

PATIENT
  Age: 62 Year
  Sex: Female

DRUGS (8)
  1. LYSODREN [Suspect]
     Active Substance: MITOTANE
     Indication: Adrenal gland cancer
     Dosage: UNSPECIFIED DOSE
     Route: 048
     Dates: start: 20190529
  2. LYSODREN [Suspect]
     Active Substance: MITOTANE
     Indication: Adrenal gland cancer
     Dosage: 1500 MG THREE TIMES DAILY
     Route: 048
     Dates: start: 20201125
  3. LYSODREN [Suspect]
     Active Substance: MITOTANE
     Indication: Adrenal gland cancer
     Dosage: 03 TABLETS THREE TIMES DAILY
     Route: 048
     Dates: start: 20201128
  4. FLUDROCORTISONE [Suspect]
     Active Substance: FLUDROCORTISONE
     Indication: Product used for unknown indication
  5. PREDNISONE [Suspect]
     Active Substance: PREDNISONE
     Indication: Product used for unknown indication
  6. ATORVASTATIN [Concomitant]
     Active Substance: ATORVASTATIN
     Indication: Product used for unknown indication
  7. EFFEXOR XR [Concomitant]
     Active Substance: VENLAFAXINE HYDROCHLORIDE
     Indication: Product used for unknown indication
  8. ZEJULA [Concomitant]
     Active Substance: NIRAPARIB
     Indication: Product used for unknown indication

REACTIONS (3)
  - Abdominal discomfort [Unknown]
  - Fatigue [Unknown]
  - Product use complaint [Unknown]

NARRATIVE: CASE EVENT DATE: 20190615
